FAERS Safety Report 6701597-9 (Version None)
Quarter: 2010Q2

REPORT INFORMATION
  Report Type: 
  Country: None (occurrence: None)
  Receive Date: 20100429
  Receipt Date: 20100420
  Transmission Date: 20101027
  Serious: Yes (Hospitalization, Other)
  Sender: FDA-Public Use
  Company Number: SE-ELI_LILLY_AND_COMPANY-SE201002001404

PATIENT
  Sex: Male

DRUGS (2)
  1. HUMALOG MIX 50/50 [Suspect]
     Indication: DIABETES MELLITUS
     Dosage: 26 IU, EACH MORNING
  2. HUMALOG MIX 50/50 [Suspect]
     Dosage: 22 IU, EACH EVENING

REACTIONS (9)
  - DECREASED ACTIVITY [None]
  - DEVICE MALFUNCTION [None]
  - FEELING ABNORMAL [None]
  - HYPERGLYCAEMIA [None]
  - INCORRECT DOSE ADMINISTERED [None]
  - KETOACIDOSIS [None]
  - THIRST [None]
  - THROMBOSIS [None]
  - VOMITING [None]
